FAERS Safety Report 21575988 (Version 1)
Quarter: 2022Q4

REPORT INFORMATION
  Report Type: Spontaneous
  Country: US (occurrence: US)
  Receive Date: 20221110
  Receipt Date: 20221110
  Transmission Date: 20230112
  Serious: No
  Sender: FDA-Public Use
  Company Number: US-BIOGEN-2022BI01167847

PATIENT
  Sex: Female

DRUGS (10)
  1. TECFIDERA [Suspect]
     Active Substance: DIMETHYL FUMARATE
     Indication: Multiple sclerosis
     Route: 050
  2. LYSINE [Concomitant]
     Active Substance: LYSINE
     Route: 050
  3. LEXAPRO [Concomitant]
     Active Substance: ESCITALOPRAM OXALATE
     Route: 050
  4. PANTOPRAZOLE SODIUM [Concomitant]
     Active Substance: PANTOPRAZOLE SODIUM
     Route: 050
  5. DILTIAZEM [Concomitant]
     Active Substance: DILTIAZEM
     Route: 050
  6. BIOTIN [Concomitant]
     Active Substance: BIOTIN
     Route: 050
  7. OMEGA 3 [Concomitant]
     Active Substance: CAPSAICIN
     Route: 050
  8. MORPHINE SULFATE [Concomitant]
     Active Substance: MORPHINE SULFATE
     Route: 050
  9. ONDANSETRON [Concomitant]
     Active Substance: ONDANSETRON
     Route: 050
  10. MELOXICAM [Concomitant]
     Active Substance: MELOXICAM
     Route: 050

REACTIONS (2)
  - Illness [Unknown]
  - Abdominal pain [Unknown]
